FAERS Safety Report 25598846 (Version 3)
Quarter: 2025Q4

REPORT INFORMATION
  Report Type: Spontaneous
  Country: US (occurrence: US)
  Receive Date: 20250724
  Receipt Date: 20251127
  Transmission Date: 20260118
  Serious: Yes (Hospitalization, Other)
  Sender: ROCHE
  Company Number: US-ROCHE-10000341167

PATIENT
  Sex: Female

DRUGS (2)
  1. XOLAIR [Suspect]
     Active Substance: OMALIZUMAB
     Indication: Idiopathic urticaria
     Dosage: STRENGTH: 300 MG/2 ML
     Route: 058
     Dates: start: 202504
  2. XOLAIR [Suspect]
     Active Substance: OMALIZUMAB
     Dosage: STRENGTH: 300 MG/2 ML
     Route: 058
     Dates: start: 202504

REACTIONS (3)
  - Idiopathic urticaria [Unknown]
  - Off label use [Unknown]
  - Transient ischaemic attack [Unknown]
